FAERS Safety Report 4722152-6 (Version None)
Quarter: 2005Q3

REPORT INFORMATION
  Report Type: 
  Country: None (occurrence: None)
  Receive Date: 20050722
  Receipt Date: 20040812
  Transmission Date: 20060218
  Serious: No
  Sender: FDA-Public Use
  Company Number: US-GLAXOSMITHKLINE-A0521991A

PATIENT
  Age: 58 Year
  Sex: Female

DRUGS (5)
  1. AVANDIA [Suspect]
     Dosage: 4MG TWICE PER DAY
     Route: 048
     Dates: start: 20040615
  2. METFORMIN [Concomitant]
  3. GEMFIBROZIL [Concomitant]
  4. ALTACE [Concomitant]
  5. LEVOXYL [Concomitant]

REACTIONS (2)
  - LACRIMATION INCREASED [None]
  - RHINORRHOEA [None]
